FAERS Safety Report 14440016 (Version 2)
Quarter: 2018Q1

REPORT INFORMATION
  Report Type: Report from Study
  Country: US (occurrence: US)
  Receive Date: 20180125
  Receipt Date: 20180201
  Transmission Date: 20180509
  Serious: No
  Sender: FDA-Public Use
  Company Number: US-009507513-1712USA013246

PATIENT
  Age: 22 Year
  Sex: Female

DRUGS (1)
  1. IMPLANON [Suspect]
     Active Substance: ETONOGESTREL
     Dosage: 1 ROD, EVERY 3 YEARS
     Route: 059
     Dates: start: 2014, end: 20171216

REACTIONS (4)
  - Implant site scar [Unknown]
  - Complication of device removal [Recovered/Resolved]
  - Encapsulation reaction [Unknown]
  - Implant site fibrosis [Unknown]

NARRATIVE: CASE EVENT DATE: 20171216
